FAERS Safety Report 24158237 (Version 1)
Quarter: 2024Q3

REPORT INFORMATION
  Report Type: Spontaneous
  Country: DE (occurrence: DE)
  Receive Date: 20240731
  Receipt Date: 20240731
  Transmission Date: 20241017
  Serious: Yes (Other)
  Sender: MYLAN
  Company Number: DE-ABBVIE-5817839

PATIENT
  Age: 36 Year
  Sex: Female
  Weight: 89 kg

DRUGS (11)
  1. METHOTREXATE [Suspect]
     Active Substance: METHOTREXATE
     Indication: Product used for unknown indication
     Dosage: UNK
     Route: 065
  2. RINVOQ [Suspect]
     Active Substance: UPADACITINIB
     Indication: Polyarthritis
     Dosage: 15 MILLIGRAM, QD (LAST ADMINISTRATION DATE: 2024)
     Route: 048
     Dates: start: 20240126
  3. RINVOQ [Suspect]
     Active Substance: UPADACITINIB
     Indication: Colitis ulcerative
  4. CHOLECALCIFEROL [Concomitant]
     Active Substance: CHOLECALCIFEROL
     Indication: Osteoporosis prophylaxis
     Dosage: 20000 INTERNATIONAL UNIT, QW
     Route: 048
  5. PREDNISOLONE [Concomitant]
     Active Substance: PREDNISOLONE
     Indication: Product used for unknown indication
     Dosage: UNK
     Route: 065
     Dates: start: 202310
  6. PREDNISOLONE [Concomitant]
     Active Substance: PREDNISOLONE
     Dosage: Q3W (7.5 MG/5 MG ALTERNATELY FOR 3 WEEKS)
     Route: 065
     Dates: start: 202401, end: 202401
  7. PREDNISOLONE [Concomitant]
     Active Substance: PREDNISOLONE
     Dosage: Q2W (10 MG/7.5 MG ALTERNATELY FOR 14 DAYS)
     Route: 065
     Dates: start: 202401, end: 202401
  8. PREDNISOLONE [Concomitant]
     Active Substance: PREDNISOLONE
     Dosage: 5 MILLIGRAM
     Route: 065
     Dates: start: 202401
  9. DICLOFENAC [Concomitant]
     Active Substance: DICLOFENAC
     Indication: Pain
     Dosage: 75 MILLIGRAM, QID
     Route: 048
  10. MESALAMINE [Concomitant]
     Active Substance: MESALAMINE
     Indication: Colitis ulcerative
     Dosage: 1200 MILLIGRAM, QD
     Route: 048
  11. PANTOPRAZOLE [Concomitant]
     Active Substance: PANTOPRAZOLE
     Indication: Gastrointestinal disorder prophylaxis
     Dosage: 20 MG, QD (FREQUENCY TEXT: 1-0-0-0), FREQUENCY TEXT: PRN (ACCORDING TO PRESCRIPTION, 4X A DAY)
     Route: 048

REACTIONS (8)
  - Polyarthritis [Unknown]
  - Gamma-glutamyltransferase increased [Not Recovered/Not Resolved]
  - Tenosynovitis [Unknown]
  - C-reactive protein increased [Unknown]
  - Joint swelling [Unknown]
  - Blood alkaline phosphatase increased [Unknown]
  - Alanine aminotransferase increased [Unknown]
  - Arthralgia [Unknown]

NARRATIVE: CASE EVENT DATE: 20240201
